FAERS Safety Report 15858293 (Version 1)
Quarter: 2018Q4

REPORT INFORMATION
  Report Type: Spontaneous
  Country: US (occurrence: US)
  Receive Date: 20181231
  Receipt Date: 20181231
  Transmission Date: 20190205
  Serious: No
  Sender: FDA-Public Use
  Company Number: None

PATIENT
  Age: 24 Year
  Sex: Female

DRUGS (2)
  1. TACROLIMUS CAP 5MG [Suspect]
     Active Substance: TACROLIMUS
     Indication: LIVER TRANSPLANT
     Route: 048
     Dates: start: 201804, end: 20181223
  2. TACROLIMUS 1MG CAP [Concomitant]
     Active Substance: TACROLIMUS

REACTIONS (2)
  - Blood glucose increased [None]
  - Hypertension [None]

NARRATIVE: CASE EVENT DATE: 20181228
